FAERS Safety Report 11484193 (Version 2)
Quarter: 2015Q3

REPORT INFORMATION
  Report Type: Spontaneous
  Country: US (occurrence: US)
  Receive Date: 20150903
  Receipt Date: 20150903
  Transmission Date: 20151125
  Serious: Yes (Other)
  Sender: FDA-Public Use
  Company Number: US-ELI_LILLY_AND_COMPANY-US201201009334

PATIENT
  Sex: Female
  Weight: 54.42 kg

DRUGS (14)
  1. CYMBALTA [Suspect]
     Active Substance: DULOXETINE HYDROCHLORIDE
     Dosage: UNK
  2. HYDROCHLOROTHIAZIDE. [Concomitant]
     Active Substance: HYDROCHLOROTHIAZIDE
  3. TOPAMAX [Concomitant]
     Active Substance: TOPIRAMATE
  4. ACIPHEX [Concomitant]
     Active Substance: RABEPRAZOLE SODIUM
  5. CYMBALTA [Suspect]
     Active Substance: DULOXETINE HYDROCHLORIDE
     Dosage: 90 MG, QD
     Dates: start: 20100308, end: 20120503
  6. SIMVASTATIN. [Concomitant]
     Active Substance: SIMVASTATIN
  7. LEVOXYL [Concomitant]
     Active Substance: LEVOTHYROXINE SODIUM
  8. ATROVENT [Concomitant]
     Active Substance: IPRATROPIUM BROMIDE
  9. CYMBALTA [Suspect]
     Active Substance: DULOXETINE HYDROCHLORIDE
     Indication: DEPRESSION
     Dosage: UNK UNK, QD
     Dates: start: 200701
  10. CLONAZEPAM. [Concomitant]
     Active Substance: CLONAZEPAM
  11. AMBIEN [Concomitant]
     Active Substance: ZOLPIDEM TARTRATE
  12. BONIVA [Concomitant]
     Active Substance: IBANDRONATE SODIUM
  13. ADVAIR DISKUS [Concomitant]
     Active Substance: FLUTICASONE PROPIONATE\SALMETEROL XINAFOATE
  14. PROVENTIL                               /USA/ [Concomitant]

REACTIONS (9)
  - Burning mouth syndrome [Not Recovered/Not Resolved]
  - Drug ineffective [Not Recovered/Not Resolved]
  - Blood cholesterol increased [Unknown]
  - Suicidal ideation [Not Recovered/Not Resolved]
  - Drug withdrawal syndrome [Unknown]
  - Major depression [Recovering/Resolving]
  - Stomatitis [Not Recovered/Not Resolved]
  - Headache [Unknown]
  - Panic attack [Unknown]

NARRATIVE: CASE EVENT DATE: 2009
